FAERS Safety Report 21652292 (Version 1)
Quarter: 2022Q4

REPORT INFORMATION
  Report Type: Spontaneous
  Country: US (occurrence: None)
  Receive Date: 20221125
  Receipt Date: 20221125
  Transmission Date: 20230113
  Serious: Yes (Other)
  Sender: FDA-Public Use
  Company Number: None

PATIENT
  Age: 49 Year
  Sex: Female
  Weight: 58.5 kg

DRUGS (3)
  1. SUBOXONE [Suspect]
     Active Substance: BUPRENORPHINE HYDROCHLORIDE\NALOXONE HYDROCHLORIDE
     Indication: Pain
     Dosage: OTHER QUANTITY : 2 PATCH(ES);?FREQUENCY : TWICE A DAY;?
     Route: 060
     Dates: start: 20010101
  2. Suboxone 8 mg 2x^s/ day [Concomitant]
  3. Ibuprofen 8mg as needed [Concomitant]

REACTIONS (1)
  - Dental caries [None]

NARRATIVE: CASE EVENT DATE: 20010101
